FAERS Safety Report 7073649 (Version 2)
Quarter: 2014Q3

REPORT INFORMATION
  Report Type: Spontaneous
  Country: US (occurrence: None)
  Receive Date: 20090724
  Receipt Date: 20140804
  Transmission Date: 20150326
  Serious: Yes (Other)
  Sender: FDA-Public Use
  Company Number: 2009S1005695

PATIENT
  Age: 57 Year
  Sex: Female

DRUGS (10)
  1. FLEET [Suspect]
     Active Substance: BISACODYL\GLYCERIN\MINERAL OIL\SODIUM PHOSPHATE, DIBASIC\SODIUM PHOSPHATE, MONOBASIC
     Indication: COLONOSCOPY
  2. NITROGLYCERINE (GLYCERYL TRINITRATE) [Concomitant]
  3. PHOSPHO-SODA [Suspect]
     Active Substance: SODIUM PHOSPHATE, DIBASIC\SODIUM PHOSPHATE, MONOBASIC
     Indication: COLONOSCOPY
     Route: 048
     Dates: start: 20140616, end: 20140616
  4. ISOSORBID (ISOSORBIDE MONONITRATE) [Concomitant]
  5. NEXIUM [Concomitant]
     Active Substance: ESOMEPRAZOLE MAGNESIUM
  6. XANAX [Concomitant]
     Active Substance: ALPRAZOLAM
  7. NAPROXEN (NAPROXEN) [Concomitant]
     Active Substance: NAPROXEN
  8. METAMUCIL (PLANTAGO OVATA) [Concomitant]
  9. ATACAND [Concomitant]
     Active Substance: CANDESARTAN CILEXETIL
  10. ASPIRIN (ACETYLSALICYLIC ACID) [Concomitant]
     Active Substance: ASPIRIN

REACTIONS (31)
  - Dysuria [None]
  - Blood glucose increased [None]
  - Colitis ischaemic [None]
  - Chills [None]
  - Vision blurred [None]
  - Abdominal distension [None]
  - Hyperhidrosis [None]
  - Renal failure acute [None]
  - Pneumonia [None]
  - Hypoglycaemia [None]
  - Asthenia [None]
  - Cardiomegaly [None]
  - Pulmonary congestion [None]
  - Headache [None]
  - Irritable bowel syndrome [None]
  - Flank pain [None]
  - Musculoskeletal pain [None]
  - Pyrexia [None]
  - Productive cough [None]
  - Sputum discoloured [None]
  - Tremor [None]
  - Large intestinal ulcer [None]
  - Back pain [None]
  - Faeces discoloured [None]
  - Anxiety [None]
  - Renal failure chronic [None]
  - Pseudomembranous colitis [None]
  - Abdominal pain upper [None]
  - Cardiac failure congestive [None]
  - Myocardial infarction [None]
  - Transient ischaemic attack [None]

NARRATIVE: CASE EVENT DATE: 20040625
